FAERS Safety Report 24379489 (Version 1)
Quarter: 2024Q3

REPORT INFORMATION
  Report Type: Spontaneous
  Country: US (occurrence: US)
  Receive Date: 20240930
  Receipt Date: 20240930
  Transmission Date: 20241016
  Serious: No
  Sender: Thea Pharma
  Company Number: US-THEA-2024000693

PATIENT
  Sex: Male

DRUGS (3)
  1. IVIZIA [Suspect]
     Active Substance: POVIDONE
     Indication: Eye lubrication therapy
     Dosage: SEVERAL TIMES A DAY
     Route: 047
  2. LATANOPROST [Suspect]
     Active Substance: LATANOPROST
     Indication: Product used for unknown indication
     Dosage: BOTH EYES
     Route: 047
  3. TIMOLOL [Suspect]
     Active Substance: TIMOLOL\TIMOLOL MALEATE
     Indication: Product used for unknown indication
     Dosage: BOTH EYES
     Route: 047

REACTIONS (2)
  - Eye irritation [Recovered/Resolved]
  - Glare [Recovered/Resolved]
